FAERS Safety Report 4765471-X (Version None)
Quarter: 2005Q3

REPORT INFORMATION
  Report Type: 
  Country: None (occurrence: None)
  Receive Date: 20050908
  Receipt Date: 20050908
  Transmission Date: 20060218
  Serious: Yes (Hospitalization)
  Sender: FDA-Public Use
  Company Number: None

PATIENT
  Age: 42 Year
  Sex: Female
  Weight: 64 kg

DRUGS (1)
  1. WELLBUTRIN [Suspect]
     Indication: DEPRESSION
     Dosage: 450 MG PO QD DOSE INCREASED RECENTLY
     Route: 048

REACTIONS (6)
  - ABNORMAL BEHAVIOUR [None]
  - CONVULSION [None]
  - FALL [None]
  - FOAMING AT MOUTH [None]
  - HYPONATRAEMIA [None]
  - LOSS OF CONSCIOUSNESS [None]
